FAERS Safety Report 20886634 (Version 4)
Quarter: 2022Q3

REPORT INFORMATION
  Report Type: Report from Study
  Country: CO (occurrence: CO)
  Receive Date: 20220527
  Receipt Date: 20220830
  Transmission Date: 20221027
  Serious: Yes (Life-Threatening, Other)
  Sender: FDA-Public Use
  Company Number: CO-NOVARTISPH-NVSC2022CO114500

PATIENT
  Age: 60 Year
  Sex: Female
  Weight: 55 kg

DRUGS (5)
  1. ELTROMBOPAG OLAMINE [Suspect]
     Active Substance: ELTROMBOPAG OLAMINE
     Indication: Immune thrombocytopenia
     Dosage: 50 MG, QD
     Route: 048
  2. ELTROMBOPAG OLAMINE [Suspect]
     Active Substance: ELTROMBOPAG OLAMINE
     Dosage: UNK
     Route: 048
  3. LEVOTHYROXINE [Concomitant]
     Active Substance: LEVOTHYROXINE
     Indication: Thyroid disorder
     Dosage: 25 MG, QD
     Route: 048
  4. PREDNISOLONE [Concomitant]
     Active Substance: PREDNISOLONE
     Indication: Purpura
     Dosage: 1 DOSAGE FORM, QD
     Route: 048
     Dates: start: 202204
  5. PREDNISOLONE [Concomitant]
     Active Substance: PREDNISOLONE
     Dosage: 50 MG, QD
     Route: 065

REACTIONS (11)
  - Platelet count decreased [Not Recovered/Not Resolved]
  - Glaucoma [Unknown]
  - Hyperhidrosis [Unknown]
  - Drug intolerance [Unknown]
  - Anxiety [Unknown]
  - Haematoma [Unknown]
  - Fatigue [Unknown]
  - Thirst [Unknown]
  - Tongue discolouration [Unknown]
  - Foaming at mouth [Unknown]
  - Dry mouth [Unknown]

NARRATIVE: CASE EVENT DATE: 20220519
